FAERS Safety Report 4522609-7 (Version None)
Quarter: 2004Q4

REPORT INFORMATION
  Report Type: 
  Country: None (occurrence: None)
  Receive Date: 20041207
  Receipt Date: 20041122
  Transmission Date: 20050328
  Serious: Yes (Life-Threatening, Hospitalization)
  Sender: FDA-Public Use
  Company Number: FR_041105256

PATIENT
  Age: 51 Year
  Sex: Male

DRUGS (2)
  1. HUMALOG [Suspect]
     Indication: DIABETES MELLITUS INSULIN-DEPENDENT
     Dosage: 26 IU DAY
  2. HUMULIN N [Suspect]
     Indication: DIABETES MELLITUS INSULIN-DEPENDENT
     Dosage: 44 IU DAY

REACTIONS (5)
  - AGGRESSION [None]
  - AGITATION [None]
  - DISORIENTATION [None]
  - HYPOGLYCAEMIA [None]
  - ROAD TRAFFIC ACCIDENT [None]
